FAERS Safety Report 6638263-4 (Version None)
Quarter: 2010Q1

REPORT INFORMATION
  Report Type: 
  Country: None (occurrence: None)
  Receive Date: 20100317
  Receipt Date: 20100308
  Transmission Date: 20100710
  Serious: Yes (Other)
  Sender: FDA-Public Use
  Company Number: US-ROCHE-689461

PATIENT
  Age: 67 Year
  Sex: Female

DRUGS (2)
  1. TICLOPIDINE HCL [Suspect]
     Indication: CORONARY ARTERY DISEASE
     Route: 065
  2. ASPIRIN [Suspect]
     Indication: CORONARY ARTERY DISEASE
     Route: 065

REACTIONS (2)
  - MYOCARDIAL INFARCTION [None]
  - RASH [None]
